FAERS Safety Report 11253800 (Version 1)
Quarter: 2015Q3

REPORT INFORMATION
  Report Type: Spontaneous
  Country: GB (occurrence: GB)
  Receive Date: 20150709
  Receipt Date: 20150709
  Transmission Date: 20151125
  Serious: Yes (Other)
  Sender: FDA-Public Use
  Company Number: GB-TEVA-575763ACC

PATIENT
  Age: 29 Year
  Sex: Female

DRUGS (1)
  1. HYDROCORTISONE. [Suspect]
     Active Substance: HYDROCORTISONE
     Indication: ARTHROPOD BITE
     Route: 061
     Dates: start: 20150605, end: 20150605

REACTIONS (3)
  - Application site pain [Unknown]
  - Gait disturbance [Unknown]
  - Application site infection [Recovering/Resolving]

NARRATIVE: CASE EVENT DATE: 20150606
